FAERS Safety Report 7593041-7 (Version None)
Quarter: 2011Q3

REPORT INFORMATION
  Report Type: 
  Country: None (occurrence: None)
  Receive Date: 20110706
  Receipt Date: 20110622
  Transmission Date: 20111222
  Serious: Yes (Other)
  Sender: FDA-Public Use
  Company Number: FR-ROCHE-785148

PATIENT
  Sex: Female

DRUGS (4)
  1. TAXOTERE [Suspect]
     Dosage: FORM: INFUSION
     Route: 042
     Dates: start: 20110516, end: 20110516
  2. SOLU-MEDROL [Concomitant]
  3. ONDANSETRON [Concomitant]
  4. HERCEPTIN [Suspect]
     Dosage: FORM:INFUSION,
     Route: 042
     Dates: start: 20110516, end: 20110516

REACTIONS (6)
  - CONJUNCTIVITIS [None]
  - DIARRHOEA [None]
  - MOUTH ULCERATION [None]
  - SKIN EXFOLIATION [None]
  - EYELID OEDEMA [None]
  - ERYTHEMA [None]
